FAERS Safety Report 5925006-2 (Version None)
Quarter: 2008Q3

REPORT INFORMATION
  Report Type: 
  Country: None (occurrence: None)
  Receive Date: 20080909
  Receipt Date: 20080512
  Transmission Date: 20090109
  Serious: Yes (Death, Other)
  Sender: FDA-Public Use
  Company Number: 163-20785-08040715

PATIENT
  Age: 64 Year
  Sex: Female

DRUGS (1)
  1. THALOMID [Suspect]
     Indication: MULTIPLE MYELOMA
     Dosage: FROM 1-2, QD, ORAL
     Route: 048
     Dates: start: 20061001, end: 20071101

REACTIONS (2)
  - MENINGITIS [None]
  - MULTIPLE MYELOMA [None]
